FAERS Safety Report 13582290 (Version 1)
Quarter: 2017Q2

REPORT INFORMATION
  Report Type: Spontaneous
  Country: US (occurrence: US)
  Receive Date: 20170525
  Receipt Date: 20170525
  Transmission Date: 20170830
  Serious: No
  Sender: FDA-Public Use
  Company Number: US-PFIZER INC-2017222078

PATIENT
  Age: 16 Year
  Sex: Female

DRUGS (1)
  1. GENOTROPIN MQ [Suspect]
     Active Substance: SOMATROPIN
     Indication: BLOOD GROWTH HORMONE ABNORMAL
     Dosage: 0.6 MG, UNK (6 DAYS PER WEEK)
     Dates: start: 201602

REACTIONS (6)
  - Anger [Unknown]
  - Snoring [Unknown]
  - Blood pressure abnormal [Unknown]
  - Somnolence [Unknown]
  - Weight increased [Unknown]
  - Diarrhoea [Unknown]
